FAERS Safety Report 14425888 (Version 4)
Quarter: 2018Q1

REPORT INFORMATION
  Report Type: Report from Study
  Country: CN (occurrence: CN)
  Receive Date: 20180123
  Receipt Date: 20180308
  Transmission Date: 20180509
  Serious: Yes (Hospitalization)
  Sender: FDA-Public Use
  Company Number: PHHO2018CN000923

PATIENT
  Age: 42 Year
  Sex: Male
  Weight: 79.7 kg

DRUGS (4)
  1. AIN457 [Suspect]
     Active Substance: SECUKINUMAB
     Indication: ANKYLOSING SPONDYLITIS
     Dosage: 150MG/1ML 0MG/1ML, QW (BSL-W4), 4 WEEKS R(W4-W48)
     Route: 058
     Dates: start: 20170801, end: 20171226
  2. DICLOFENAC SODIUM. [Concomitant]
     Active Substance: DICLOFENAC SODIUM
     Indication: ANKYLOSING SPONDYLITIS
     Dosage: 50 MG, BID
     Route: 048
     Dates: start: 20171226
  3. SULFASALAZINE. [Concomitant]
     Active Substance: SULFASALAZINE
     Indication: ANKYLOSING SPONDYLITIS
     Dosage: 1 G, QD
     Route: 048
     Dates: start: 2008
  4. AIN457 [Suspect]
     Active Substance: SECUKINUMAB
     Dosage: 150MG/1ML 0MG/1ML, QW (BSL-W4), 4 WEEKS R(W4-W48)
     Route: 058
     Dates: start: 20180227

REACTIONS (1)
  - Anal abscess [Recovered/Resolved]

NARRATIVE: CASE EVENT DATE: 20180103
